FAERS Safety Report 6043045-0 (Version None)
Quarter: 2009Q1

REPORT INFORMATION
  Report Type: 
  Country: None (occurrence: None)
  Receive Date: 20090119
  Receipt Date: 20090109
  Transmission Date: 20090719
  Serious: Yes (Hospitalization, Other)
  Sender: FDA-Public Use
  Company Number: AU-NOVOPROD-282954

PATIENT
  Sex: Male

DRUGS (6)
  1. NOVORAPID FLEXPEN [Suspect]
     Indication: INSULIN-REQUIRING TYPE 2 DIABETES MELLITUS
     Dosage: 7 IU, TID
     Dates: start: 20081202
  2. NOVORAPID FLEXPEN [Suspect]
     Dates: start: 20090110
  3. LANTUS [Concomitant]
     Indication: INSULIN-REQUIRING TYPE 2 DIABETES MELLITUS
     Dosage: 22 U, QD
     Dates: start: 20081202
  4. WARFARIN SODIUM [Concomitant]
  5. ANTIBIOTICS [Concomitant]
     Dates: start: 20081201, end: 20090101
  6. NOVORAPID [Concomitant]
     Indication: INSULIN-REQUIRING TYPE 2 DIABETES MELLITUS
     Dates: start: 20081220, end: 20090110

REACTIONS (5)
  - BLOOD GLUCOSE FLUCTUATION [None]
  - BLOOD GLUCOSE INCREASED [None]
  - DEVICE MALFUNCTION [None]
  - INFECTION [None]
  - PLEURAL EFFUSION [None]
